FAERS Safety Report 20589451 (Version 1)
Quarter: 2022Q1

REPORT INFORMATION
  Report Type: Spontaneous
  Country: US (occurrence: US)
  Receive Date: 20220314
  Receipt Date: 20220314
  Transmission Date: 20220424
  Serious: No
  Sender: FDA-Public Use
  Company Number: US-NOVARTISTESTPH-NVSC2021US103430

PATIENT
  Age: 10 Year

DRUGS (6)
  1. LUXTURNA [Suspect]
     Active Substance: VORETIGENE NEPARVOVEC-RZYL
     Indication: Leber^s congenital amaurosis
     Dosage: ONCE/SINGLE, (LEFT EYE)
     Route: 050
     Dates: start: 20210223, end: 20210223
  2. LUXTURNA [Suspect]
     Active Substance: VORETIGENE NEPARVOVEC-RZYL
     Dosage: ONCE/SINGLE, (RIGHT EYE)
     Route: 050
     Dates: start: 20210316, end: 20210316
  3. MAXITROL [Suspect]
     Active Substance: DEXAMETHASONE\NEOMYCIN SULFATE\POLYMYXIN B SULFATE
     Indication: Product used for unknown indication
     Dosage: STARTING DOSE OF 27 MG GIVEN OVER A TAPER DOWN TO 1 MG
     Route: 065
     Dates: start: 20210317, end: 20210420
  4. MAXITROL [Suspect]
     Active Substance: DEXAMETHASONE\NEOMYCIN SULFATE\POLYMYXIN B SULFATE
     Dosage: TAPERED DOWN FROM 4X PER DAY TO 1X PER DAY
     Route: 047
     Dates: start: 20210324, end: 20210427
  5. PREDNISONE [Suspect]
     Active Substance: PREDNISONE
     Indication: Product used for unknown indication
     Dosage: 27 MG GIVEN OVER A TAPER DOWN TO 1 MG
     Route: 048
     Dates: start: 20210313, end: 20210405
  6. FLUOROMETHOLONE [Suspect]
     Active Substance: FLUOROMETHOLONE
     Indication: Eye inflammation
     Dosage: UNK, BID, OU
     Route: 047
     Dates: start: 20210423, end: 20210521

REACTIONS (1)
  - Intraocular pressure increased [Recovered/Resolved]

NARRATIVE: CASE EVENT DATE: 20210421
